FAERS Safety Report 20319072 (Version 1)
Quarter: 2022Q1

REPORT INFORMATION
  Report Type: Spontaneous
  Country: US (occurrence: None)
  Receive Date: 20220110
  Receipt Date: 20220110
  Transmission Date: 20220424
  Serious: No
  Sender: FDA-Public Use
  Company Number: None

PATIENT
  Age: 50 Year
  Sex: Female

DRUGS (1)
  1. REGEN-COV [Suspect]
     Active Substance: CASIRIVIMAB\IMDEVIMAB

REACTIONS (5)
  - Myocardial infarction [None]
  - Chest pain [None]
  - Swelling [None]
  - Generalised oedema [None]
  - Infusion related reaction [None]

NARRATIVE: CASE EVENT DATE: 20211219
